FAERS Safety Report 4809921-9 (Version None)
Quarter: 2005Q4

REPORT INFORMATION
  Report Type: 
  Country: None (occurrence: None)
  Receive Date: 20051024
  Receipt Date: 20051013
  Transmission Date: 20060501
  Serious: Yes (Hospitalization, Other)
  Sender: FDA-Public Use
  Company Number: 2005141776

PATIENT
  Sex: Female
  Weight: 89.8122 kg

DRUGS (2)
  1. BEXTRA [Suspect]
     Indication: BACK PAIN
     Dosage: 40 MG (20 MG, 2 IN 1 D), ORAL
     Route: 048
     Dates: start: 20010101
  2. ALL OTHER THERAPEUTIC PRODUCTS (ALL OTHER THERAPEUTIC PRODUCTS) [Concomitant]

REACTIONS (10)
  - GASTRIC ULCER [None]
  - HEADACHE [None]
  - OESOPHAGEAL OBSTRUCTION [None]
  - OESOPHAGEAL ULCER [None]
  - PNEUMONIA [None]
  - POST PROCEDURAL COMPLICATION [None]
  - RASH [None]
  - RED BLOOD CELL COUNT DECREASED [None]
  - SCAR [None]
  - WEIGHT DECREASED [None]
